FAERS Safety Report 9821107 (Version 1)
Quarter: 2013Q4

REPORT INFORMATION
  Report Type: Spontaneous
  Country: US (occurrence: None)
  Receive Date: 20131028
  Receipt Date: 20131028
  Transmission Date: 20140711
  Serious: Yes (Hospitalization)
  Sender: FDA-Public Use
  Company Number: 2013US001388

PATIENT
  Age: 69 Year
  Sex: Female
  Weight: 66 kg

DRUGS (4)
  1. ICLUSIG (PONATINIB) TABLET, 45MG [Suspect]
     Indication: ACUTE LYMPHOCYTIC LEUKAEMIA
     Route: 048
     Dates: end: 20130308
  2. MULTIVITAMIN (VITAMINS NOS) [Concomitant]
  3. SYNTHROID (LEVOTHYROXINE SODIUM) [Concomitant]
  4. STOOL SOFTENER (DOCUSATE SODIUM) [Concomitant]

REACTIONS (4)
  - Pulmonary embolism [None]
  - Pericardial effusion [None]
  - Hypertension [None]
  - Gastrointestinal disorder [None]
